FAERS Safety Report 8997314 (Version 2)
Quarter: 2013Q1

REPORT INFORMATION
  Report Type: Spontaneous
  Country: US (occurrence: US)
  Receive Date: 20130104
  Receipt Date: 20130122
  Transmission Date: 20140127
  Serious: No
  Sender: FDA-Public Use
  Company Number: US-009507513-1301USA000467

PATIENT
  Age: 24 Year
  Sex: Female
  Weight: 105.67 kg

DRUGS (1)
  1. IMPLANON [Suspect]
     Indication: CONTRACEPTION
     Dosage: 1 ROD / 3 YEARS
     Route: 059
     Dates: start: 20121203

REACTIONS (2)
  - Menorrhagia [Unknown]
  - Menstrual disorder [Unknown]
